FAERS Safety Report 23544675 (Version 2)
Quarter: 2024Q3

REPORT INFORMATION
  Report Type: Spontaneous
  Country: US (occurrence: US)
  Receive Date: 20240220
  Receipt Date: 20240809
  Transmission Date: 20241017
  Serious: No
  Sender: PFIZER
  Company Number: US-PFIZER INC-PV202300122502

PATIENT
  Age: 89 Year
  Sex: Female

DRUGS (1)
  1. INLYTA [Suspect]
     Active Substance: AXITINIB
     Dosage: 3 DF, 2X/DAY (1MG, 3 PO BID)
     Route: 048

REACTIONS (2)
  - Neoplasm progression [Recovering/Resolving]
  - COVID-19 [Unknown]
